FAERS Safety Report 9882360 (Version 1)
Quarter: 2014Q1

REPORT INFORMATION
  Report Type: Spontaneous
  Country: US (occurrence: US)
  Receive Date: 20140207
  Receipt Date: 20140207
  Transmission Date: 20141002
  Serious: Yes (Hospitalization, Other)
  Sender: FDA-Public Use
  Company Number: US-BAYER-2014-019957

PATIENT
  Age: 41 Year
  Sex: Female

DRUGS (3)
  1. BEYAZ [Suspect]
  2. PRILOSEC [Concomitant]
     Dosage: 20 MG, QD
     Dates: start: 20110627
  3. ALBUTEROL [Concomitant]
     Dosage: 90 ?G, INHALE 2 PUFF EVERY 4-6
     Dates: start: 20110627

REACTIONS (3)
  - Thrombosis [None]
  - Thrombophlebitis superficial [None]
  - Deep vein thrombosis [None]
